FAERS Safety Report 21478407 (Version 1)
Quarter: 2022Q4

REPORT INFORMATION
  Report Type: Spontaneous
  Country: US (occurrence: None)
  Receive Date: 20221019
  Receipt Date: 20221019
  Transmission Date: 20230113
  Serious: Yes (Other)
  Sender: FDA-Public Use
  Company Number: 2022A346097

PATIENT
  Sex: Female
  Weight: 43.1 kg

DRUGS (6)
  1. SEROQUEL [Suspect]
     Active Substance: QUETIAPINE FUMARATE
     Indication: Product used for unknown indication
     Route: 048
  2. METOPROLOL SUCCINATE [Suspect]
     Active Substance: METOPROLOL SUCCINATE
     Route: 048
  3. LOSARTAN [Concomitant]
     Active Substance: LOSARTAN
  4. ELIQUIS [Concomitant]
     Active Substance: APIXABAN
  5. TRAMADOL [Concomitant]
     Active Substance: TRAMADOL
  6. XANAX [Concomitant]
     Active Substance: ALPRAZOLAM

REACTIONS (1)
  - Hip fracture [Unknown]
